FAERS Safety Report 11126537 (Version 2)
Quarter: 2015Q2

REPORT INFORMATION
  Report Type: Spontaneous
  Country: US (occurrence: US)
  Receive Date: 20150520
  Receipt Date: 20150609
  Transmission Date: 20150821
  Serious: Yes (Death, Hospitalization)
  Sender: FDA-Public Use
  Company Number: US-JNJFOC-20150513619

PATIENT
  Age: 44 Year
  Sex: Male

DRUGS (11)
  1. RAMIPRIL. [Concomitant]
     Active Substance: RAMIPRIL
  2. METHYLPHENIDATE [Concomitant]
     Active Substance: METHYLPHENIDATE
  3. VALTREX [Concomitant]
     Active Substance: VALACYCLOVIR HYDROCHLORIDE
  4. DOLUTEGRAVIR [Concomitant]
     Active Substance: DOLUTEGRAVIR
  5. DEXAMETHASONE. [Concomitant]
     Active Substance: DEXAMETHASONE
  6. IMBRUVICA [Suspect]
     Active Substance: IBRUTINIB
     Indication: BURKITT^S LYMPHOMA
     Route: 048
     Dates: start: 20150328
  7. BACTRIM [Concomitant]
     Active Substance: SULFAMETHOXAZOLE\TRIMETHOPRIM
  8. TEMODAR [Concomitant]
     Active Substance: TEMOZOLOMIDE
  9. ATIVAN [Concomitant]
     Active Substance: LORAZEPAM
  10. METOPROLOL [Concomitant]
     Active Substance: METOPROLOL
  11. TRUVADA [Concomitant]
     Active Substance: EMTRICITABINE\TENOFOVIR DISOPROXIL FUMARATE

REACTIONS (2)
  - Off label use [Unknown]
  - Disease progression [Fatal]

NARRATIVE: CASE EVENT DATE: 20150328
